FAERS Safety Report 10458484 (Version 1)
Quarter: 2014Q3

REPORT INFORMATION
  Report Type: Spontaneous
  Country: KP (occurrence: KP)
  Receive Date: 20140917
  Receipt Date: 20140917
  Transmission Date: 20150326
  Serious: Yes (Death)
  Sender: FDA-Public Use
  Company Number: KP-CIPLA LTD.-2014KP01357

PATIENT

DRUGS (2)
  1. GEMCITABINE [Suspect]
     Active Substance: GEMCITABINE\GEMCITABINE HYDROCHLORIDE
     Indication: PANCREATIC CARCINOMA METASTATIC
  2. CYTOKINE INDUCED KILLER CELLS THERAPY [Suspect]
     Active Substance: INVESTIGATIONAL PRODUCT
     Indication: PANCREATIC CARCINOMA METASTATIC
     Dosage: 46.6 X 10 9 CELLS/INFUSION 1 H EVERY WEEK FOR 5 WEEKS AND THEN EVERY OTHER WEEK FOR 10 WEEK
     Route: 042

REACTIONS (3)
  - Disease progression [Fatal]
  - Pancreatic carcinoma metastatic [None]
  - Malignant neoplasm progression [None]
